FAERS Safety Report 6914718 (Version 5)
Quarter: 2013Q4

REPORT INFORMATION
  Report Type: Report from Study
  Country: GB (occurrence: GB)
  Receive Date: 20090220
  Receipt Date: 20131111
  Transmission Date: 20140711
  Serious: Yes (Hospitalization)
  Sender: FDA-Public Use
  Company Number: GB-BRISTOL-MYERS SQUIBB COMPANY-14512701

PATIENT
  Age: 76 Year
  Sex: Female

DRUGS (11)
  1. CETUXIMAB [Suspect]
     Indication: OESOPHAGEAL CARCINOMA
     Dosage: RECENT INFUSION: 23JAN2009
     Route: 042
     Dates: start: 20090102
  2. CISPLATIN [Suspect]
     Indication: OESOPHAGEAL CARCINOMA
     Dosage: RECENT INFUSION: 23JAN2009
     Route: 042
     Dates: start: 20081203
  3. FLUOROURACIL [Suspect]
     Indication: OESOPHAGEAL CARCINOMA
     Dosage: RECENT INFUSION: 23JAN2009
     Route: 042
     Dates: start: 20090103
  4. CAPECITABINE [Suspect]
     Indication: OESOPHAGEAL CARCINOMA
     Dosage: 312.5 MG/KG 1625 MG/KG,L IN 2 D)
     Route: 048
     Dates: start: 20081203
  5. THYROXINE [Concomitant]
     Route: 048
  6. DICLOFENAC [Concomitant]
     Route: 048
  7. LANSOPRAZOLE [Concomitant]
     Route: 048
  8. PREDNISOLONE [Concomitant]
     Route: 048
     Dates: start: 20081202
  9. ORAMORPH [Concomitant]
     Dates: start: 200812
  10. BUSCOPAN [Concomitant]
     Dates: start: 200812
  11. LACTULOSE [Concomitant]
     Dates: start: 200812

REACTIONS (1)
  - Dizziness [Recovered/Resolved]
